FAERS Safety Report 21785260 (Version 4)
Quarter: 2023Q1

REPORT INFORMATION
  Report Type: Spontaneous
  Country: AT (occurrence: AT)
  Receive Date: 20221227
  Receipt Date: 20230324
  Transmission Date: 20230418
  Serious: Yes (Other)
  Sender: FDA-Public Use
  Company Number: AT-TEVA-2022-AT-2820164

PATIENT
  Age: 64 Year
  Sex: Male

DRUGS (6)
  1. DEXAMETHASONE [Suspect]
     Active Substance: DEXAMETHASONE
     Indication: Skin mass
     Dosage: UNK
     Route: 065
     Dates: start: 201702, end: 201711
  2. DEXAMETHASONE [Suspect]
     Active Substance: DEXAMETHASONE
     Indication: Plasmacytoma
     Dosage: UNK UNK, QCY
     Route: 065
     Dates: start: 201702
  3. BORTEZOMIB [Suspect]
     Active Substance: BORTEZOMIB
     Indication: Skin mass
     Dosage: RECEIVED 6 CYCLE
     Route: 065
     Dates: start: 201702, end: 201711
  4. BORTEZOMIB [Suspect]
     Active Substance: BORTEZOMIB
     Indication: Plasmacytoma
     Dosage: UNK UNK, QCY
     Route: 065
     Dates: start: 201702
  5. THALIDOMIDE [Suspect]
     Active Substance: THALIDOMIDE
     Indication: Skin mass
     Dosage: UNK
     Route: 065
     Dates: start: 201702, end: 201711
  6. THALIDOMIDE [Suspect]
     Active Substance: THALIDOMIDE
     Indication: Plasmacytoma
     Dosage: UNK, QCY (CYCLICAL)
     Route: 065
     Dates: start: 201702

REACTIONS (1)
  - Neuropathy peripheral [Unknown]
